FAERS Safety Report 7485575-0 (Version None)
Quarter: 2011Q2

REPORT INFORMATION
  Report Type: 
  Country: None (occurrence: None)
  Receive Date: 20110517
  Receipt Date: 20110103
  Transmission Date: 20111010
  Serious: Yes (Other)
  Sender: FDA-Public Use
  Company Number: US-BAYER-2011-001432

PATIENT
  Age: 33 Year
  Sex: Female

DRUGS (1)
  1. MIRENA [Suspect]
     Indication: CONTRACEPTION
     Dosage: 20 MCG/24HR, CONT
     Route: 015
     Dates: start: 20090101

REACTIONS (4)
  - NAUSEA [None]
  - ABORTION SPONTANEOUS [None]
  - VOMITING [None]
  - PREGNANCY WITH CONTRACEPTIVE DEVICE [None]
